FAERS Safety Report 19020961 (Version 1)
Quarter: 2021Q1

REPORT INFORMATION
  Report Type: Spontaneous
  Country: DE (occurrence: DE)
  Receive Date: 20210317
  Receipt Date: 20210317
  Transmission Date: 20210420
  Serious: Yes (Hospitalization, Other)
  Sender: FDA-Public Use
  Company Number: NVSC2021DE054583

PATIENT
  Age: 5 Year
  Sex: Male
  Weight: 19 kg

DRUGS (10)
  1. FUROSEMID [Suspect]
     Active Substance: FUROSEMIDE
     Indication: FLUID RETENTION
  2. TACROLIMUS. [Concomitant]
     Active Substance: TACROLIMUS
     Indication: STREPTOCOCCAL SEPSIS
  3. CEFACLOR. [Concomitant]
     Active Substance: CEFACLOR
     Indication: CYTOMEGALOVIRUS INFECTION
     Dosage: UNK (LAST DOSE DATE 27 SEP 2019)
     Route: 048
  4. MMF [Concomitant]
     Active Substance: MYCOPHENOLATE MOFETIL
     Indication: STREPTOCOCCAL SEPSIS
  5. CEFACLOR. [Concomitant]
     Active Substance: CEFACLOR
     Indication: STREPTOCOCCAL SEPSIS
  6. VALGANCICLOVIR. [Concomitant]
     Active Substance: VALGANCICLOVIR
     Indication: CYTOMEGALOVIRUS INFECTION
     Dosage: 25MG
     Route: 048
  7. FUROSEMID [Suspect]
     Active Substance: FUROSEMIDE
     Indication: OEDEMA
     Dosage: 5MG
     Route: 048
     Dates: end: 20190921
  8. TACROLIMUS. [Concomitant]
     Active Substance: TACROLIMUS
     Indication: CYTOMEGALOVIRUS INFECTION
     Dosage: 0.2MG
     Route: 048
  9. VALGANCICLOVIR. [Concomitant]
     Active Substance: VALGANCICLOVIR
     Indication: STREPTOCOCCAL SEPSIS
  10. MMF [Concomitant]
     Active Substance: MYCOPHENOLATE MOFETIL
     Indication: CYTOMEGALOVIRUS INFECTION
     Dosage: UNK
     Route: 048

REACTIONS (2)
  - Ascites [Unknown]
  - Oedema [Unknown]

NARRATIVE: CASE EVENT DATE: 20190827
